FAERS Safety Report 13710657 (Version 1)
Quarter: 2017Q3

REPORT INFORMATION
  Report Type: Spontaneous
  Country: US (occurrence: US)
  Receive Date: 20170702
  Receipt Date: 20170702
  Transmission Date: 20171127
  Serious: Yes (Disabling)
  Sender: FDA-Public Use
  Company Number: None

PATIENT
  Age: 60 Year
  Sex: Female
  Weight: 67.5 kg

DRUGS (4)
  1. SYNTHROID [Concomitant]
     Active Substance: LEVOTHYROXINE SODIUM
  2. ATIVAN [Suspect]
     Active Substance: LORAZEPAM
     Indication: EMOTIONAL DISORDER
     Dosage: ?          OTHER STRENGTH:MG;QUANTITY:3 TABLET(S);?
     Route: 048
     Dates: start: 20090315, end: 20130619
  3. CALCIUM [Concomitant]
     Active Substance: CALCIUM
  4. VITAMIN D [Concomitant]
     Active Substance: CHOLECALCIFEROL

REACTIONS (11)
  - Insomnia [None]
  - Photophobia [None]
  - Paraesthesia [None]
  - Disturbance in attention [None]
  - Suicide attempt [None]
  - Akathisia [None]
  - Dyskinesia [None]
  - Tinnitus [None]
  - Hyperacusis [None]
  - Fear [None]
  - Withdrawal syndrome [None]

NARRATIVE: CASE EVENT DATE: 20130401
